FAERS Safety Report 6388948-2 (Version None)
Quarter: 2009Q4

REPORT INFORMATION
  Report Type: 
  Country: None (occurrence: None)
  Receive Date: 20091001
  Receipt Date: 20090922
  Transmission Date: 20100525
  Serious: Yes (Other)
  Sender: FDA-Public Use
  Company Number: ADR29182009

PATIENT
  Sex: Male

DRUGS (11)
  1. RAMIPRIL [Suspect]
     Indication: HYPERTENSION
     Dosage: 5 MG, ORAL
     Route: 048
     Dates: start: 20080320
  2. AMLODIPINE [Concomitant]
  3. CALCICHEW D3 [Concomitant]
  4. DORZOLAMIDE [Concomitant]
  5. LATANOPROST [Concomitant]
  6. LORATADINE [Concomitant]
  7. PREDNISOLONE [Concomitant]
  8. SIMVASTATIN [Concomitant]
  9. TAMSULOSIN [Concomitant]
  10. TIMOLOL [Concomitant]
  11. WARFARIN SODIUM [Concomitant]

REACTIONS (2)
  - BLOOD PRESSURE INCREASED [None]
  - DRUG INEFFECTIVE [None]
